FAERS Safety Report 17729523 (Version 1)
Quarter: 2020Q2

REPORT INFORMATION
  Report Type: Spontaneous
  Country: US (occurrence: US)
  Receive Date: 20200430
  Receipt Date: 20200430
  Transmission Date: 20200714
  Serious: Yes (Death, Disabling)
  Sender: FDA-Public Use
  Company Number: None

PATIENT
  Age: 57 Year
  Sex: Male

DRUGS (1)
  1. HALDOL [Suspect]
     Active Substance: HALOPERIDOL
     Indication: OFF LABEL USE
     Dosage: ?          OTHER FREQUENCY:DAILY;?
     Route: 048
     Dates: start: 20131101, end: 20140207

REACTIONS (2)
  - Off label use [None]
  - Sudden death [None]

NARRATIVE: CASE EVENT DATE: 20131101
